FAERS Safety Report 7407872-7 (Version None)
Quarter: 2011Q2

REPORT INFORMATION
  Report Type: 
  Country: None (occurrence: None)
  Receive Date: 20110412
  Receipt Date: 20110407
  Transmission Date: 20111010
  Serious: Yes (Death)
  Sender: FDA-Public Use
  Company Number: US-TYCO HEALTHCARE/MALLINCKRODT-T201100675

PATIENT
  Age: 84 Year
  Sex: Female

DRUGS (2)
  1. OPTIRAY 350 [Suspect]
     Indication: COMPUTERISED TOMOGRAM
     Dosage: UNK
     Dates: start: 20080101, end: 20080101
  2. OPTIRAY 350 [Suspect]
     Dosage: UNK
     Dates: start: 20090101, end: 20090101

REACTIONS (1)
  - DEATH [None]
